FAERS Safety Report 18658680 (Version 3)
Quarter: 2021Q1

REPORT INFORMATION
  Report Type: Spontaneous
  Country: US (occurrence: US)
  Receive Date: 20201224
  Receipt Date: 20210317
  Transmission Date: 20210419
  Serious: Yes (Death, Other)
  Sender: FDA-Public Use
  Company Number: US-UNITED THERAPEUTICS-UNT-2020-019874

PATIENT
  Sex: Male

DRUGS (3)
  1. UNITUXIN [Suspect]
     Active Substance: DINUTUXIMAB
     Indication: EWING^S SARCOMA
     Dosage: UNK UNK, CYCLICAL (CYCLE 1, DAYS 1?5)
     Route: 041
  2. IRINOTECAN [Concomitant]
     Active Substance: IRINOTECAN
     Indication: EWING^S SARCOMA
     Dosage: UNK
     Route: 041
  3. TEMOZOLOMIDE. [Concomitant]
     Active Substance: TEMOZOLOMIDE
     Indication: EWING^S SARCOMA
     Dosage: UNK
     Route: 041

REACTIONS (6)
  - Citrobacter sepsis [Fatal]
  - Ewing^s sarcoma [Unknown]
  - Hypoxia [Unknown]
  - Off label use [Unknown]
  - Mental status changes [Unknown]
  - Pneumonia aspiration [Fatal]
